FAERS Safety Report 10960852 (Version 1)
Quarter: 2015Q1

REPORT INFORMATION
  Report Type: Spontaneous
  Country: IT (occurrence: IT)
  Receive Date: 20150327
  Receipt Date: 20150327
  Transmission Date: 20150721
  Serious: Yes (Hospitalization)
  Sender: FDA-Public Use
  Company Number: IT-SA-2015SA038111

PATIENT
  Age: 64 Year
  Sex: Female

DRUGS (9)
  1. NITROCOR [Concomitant]
     Active Substance: NITROGLYCERIN
  2. BISOPROLOL HEMIFUMARATE [Concomitant]
     Active Substance: BISOPROLOL FUMARATE
  3. EUTIROX [Concomitant]
     Active Substance: LEVOTHYROXINE SODIUM
     Dosage: STRENGTH: 75 MICROGRAMS, 50 TABLETS.
  4. PLAVIX [Suspect]
     Active Substance: CLOPIDOGREL BISULFATE
     Indication: THROMBOSIS PROPHYLAXIS
     Route: 048
     Dates: start: 20140101, end: 20150207
  5. CARDIOASPIRIN [Suspect]
     Active Substance: ASPIRIN
     Indication: THROMBOSIS PROPHYLAXIS
     Route: 048
     Dates: start: 20140101, end: 20150207
  6. SIVASTIN [Concomitant]
     Active Substance: SIMVASTATIN
     Dosage: STRENGTH: 40 MG, 28 TABLETS.
  7. DEPAKIN [Concomitant]
     Active Substance: VALPROATE SODIUM
  8. ZOLOFT [Concomitant]
     Active Substance: SERTRALINE HYDROCHLORIDE
     Dosage: STRENGTH: 50 MG, 30 DIVISIBLE TABLETS.
  9. FOLINA [Concomitant]
     Active Substance: FOLIC ACID
     Dosage: 5 MG 20 CAPSULE

REACTIONS (4)
  - Melaena [Unknown]
  - Anaemia [Unknown]
  - Asthenia [Unknown]
  - Gastric ulcer [Unknown]

NARRATIVE: CASE EVENT DATE: 20150207
